FAERS Safety Report 10885536 (Version 1)
Quarter: 2015Q1

REPORT INFORMATION
  Report Type: Spontaneous
  Country: US (occurrence: US)
  Receive Date: 20150304
  Receipt Date: 20150304
  Transmission Date: 20150721
  Serious: Yes (Other)
  Sender: FDA-Public Use
  Company Number: US-ELI_LILLY_AND_COMPANY-US201502007950

PATIENT
  Age: 54 Year
  Sex: Female

DRUGS (6)
  1. LISINOPRIL. [Concomitant]
     Active Substance: LISINOPRIL
     Dosage: 20 MG, UNKNOWN
     Route: 065
  2. TRULICITY [Suspect]
     Active Substance: DULAGLUTIDE
     Indication: GLYCOSYLATED HAEMOGLOBIN INCREASED
     Dosage: 1.5 MG, WEEKLY (1/W)
     Route: 065
     Dates: start: 20150212, end: 20150216
  3. LANTUS [Concomitant]
     Active Substance: INSULIN GLARGINE
     Dosage: UNK, UNKNOWN
     Route: 065
  4. TRADJENTA [Concomitant]
     Active Substance: LINAGLIPTIN
     Dosage: UNK, UNKNOWN
     Route: 065
  5. TRULICITY [Suspect]
     Active Substance: DULAGLUTIDE
     Indication: DIABETES MELLITUS
     Dosage: 0.75 MG, WEEKLY (1/W)
     Route: 065
     Dates: start: 20150216
  6. NOVOLOG [Concomitant]
     Active Substance: INSULIN ASPART
     Dosage: UNK, UNKNOWN
     Route: 065

REACTIONS (10)
  - Dizziness [Recovered/Resolved]
  - Gastric pH decreased [Recovered/Resolved]
  - Palpitations [Unknown]
  - Vomiting [Recovered/Resolved]
  - Feeling abnormal [Unknown]
  - Nausea [Recovered/Resolved]
  - Blood glucose increased [Unknown]
  - Blood glucose decreased [Unknown]
  - Tremor [Unknown]
  - Malaise [Unknown]

NARRATIVE: CASE EVENT DATE: 20150213
